FAERS Safety Report 9978306 (Version 1)
Quarter: 2014Q1

REPORT INFORMATION
  Report Type: Report from Study
  Country: US (occurrence: US)
  Receive Date: 20140306
  Receipt Date: 20140306
  Transmission Date: 20141002
  Serious: No
  Sender: FDA-Public Use
  Company Number: US-ABBVIE-13P-163-1171255-00

PATIENT
  Age: 61 Year
  Sex: Female
  Weight: 90.35 kg

DRUGS (9)
  1. HUMIRA [Suspect]
     Indication: CROHN^S DISEASE
     Route: 058
     Dates: start: 20131026
  2. LISINOPRIL [Concomitant]
     Indication: PRODUCT USED FOR UNKNOWN INDICATION
  3. METFORMIN [Concomitant]
     Indication: PRODUCT USED FOR UNKNOWN INDICATION
  4. OMEPRAZOLE [Concomitant]
     Indication: PRODUCT USED FOR UNKNOWN INDICATION
  5. ALPRAZOLAM [Concomitant]
     Indication: PRODUCT USED FOR UNKNOWN INDICATION
  6. VICTOZA [Concomitant]
     Indication: PRODUCT USED FOR UNKNOWN INDICATION
  7. RASPBERRY KETONES [Concomitant]
     Indication: PRODUCT USED FOR UNKNOWN INDICATION
  8. GREEN COFFEE TEA [Concomitant]
     Indication: PRODUCT USED FOR UNKNOWN INDICATION
  9. BIOTIN [Concomitant]
     Indication: PRODUCT USED FOR UNKNOWN INDICATION

REACTIONS (1)
  - Injection site pain [Unknown]
